FAERS Safety Report 5051445-0 (Version None)
Quarter: 2006Q3

REPORT INFORMATION
  Report Type: 
  Country: None (occurrence: None)
  Receive Date: 20060710
  Receipt Date: 20060626
  Transmission Date: 20061208
  Serious: Yes (Other)
  Sender: FDA-Public Use
  Company Number: 225176

PATIENT
  Age: 81 Year
  Sex: Female
  Weight: 59 kg

DRUGS (19)
  1. AVASTIN [Suspect]
     Indication: COLON CANCER
     Dosage: 5 MG/KG, Q2W, INTRAVENOUS
     Route: 042
     Dates: start: 20060216
  2. FLUOROURACIL [Suspect]
     Indication: COLON CANCER
     Dosage: 500 MG/M2, 1/WEEK, INTRAVENOUS
     Route: 042
     Dates: start: 20060202
  3. LEUCOVORIN CALCIUM [Suspect]
     Indication: COLON CANCER
     Dosage: 500 MG/M2, 1/WEEK, INTRAVENOUS
     Route: 042
     Dates: start: 20060202
  4. DECADRON [Concomitant]
  5. ANZEMET [Concomitant]
  6. B12 COMPLEX (CYANOCOBALAMIN, VITAMIN B COMPLEX) [Concomitant]
  7. LANOXIN [Concomitant]
  8. ATENOLOL [Concomitant]
  9. PACERONE [Concomitant]
  10. PEPCID [Concomitant]
  11. ASPIRIN [Concomitant]
  12. KLONOPIN [Concomitant]
  13. DIAZEPAM [Concomitant]
  14. AMPICILLIN [Concomitant]
  15. CENTRUM SILVER (MINERALS NOS, MULTIVITAMINS NOS) [Concomitant]
  16. IRON (IRON NOS) [Concomitant]
  17. LORTAB [Concomitant]
  18. PROTONIX [Concomitant]
  19. ANTIBIOTIC [Concomitant]

REACTIONS (16)
  - ABDOMINAL PAIN LOWER [None]
  - AORTIC STENOSIS [None]
  - AORTIC VALVE INCOMPETENCE [None]
  - ATRIAL FIBRILLATION [None]
  - BLOOD LACTATE DEHYDROGENASE INCREASED [None]
  - BLOOD PRESSURE DIASTOLIC INCREASED [None]
  - ELECTROCARDIOGRAM T WAVE ABNORMAL [None]
  - FLANK PAIN [None]
  - INTRACARDIAC THROMBUS [None]
  - LETHARGY [None]
  - MITRAL VALVE INCOMPETENCE [None]
  - MYOCARDIAL ISCHAEMIA [None]
  - PLEURAL EFFUSION [None]
  - PROTHROMBIN TIME PROLONGED [None]
  - RENAL ARTERY THROMBOSIS [None]
  - VOMITING [None]
